FAERS Safety Report 12203880 (Version 1)
Quarter: 2016Q1

REPORT INFORMATION
  Report Type: Spontaneous
  Country: US (occurrence: None)
  Receive Date: 20160322
  Receipt Date: 20160322
  Transmission Date: 20160526
  Serious: Yes (Hospitalization)
  Sender: FDA-Public Use
  Company Number: None

PATIENT
  Age: 55 Year
  Sex: Male

DRUGS (1)
  1. POTASSIUM CHLORIDE SR 40MEQ [Suspect]
     Active Substance: POTASSIUM CHLORIDE
     Dosage: X1 DOSE
     Route: 048
     Dates: start: 20150129

REACTIONS (1)
  - Blood potassium increased [None]

NARRATIVE: CASE EVENT DATE: 20150201
